FAERS Safety Report 4443238-X (Version None)
Quarter: 2004Q3

REPORT INFORMATION
  Report Type: 
  Country: None (occurrence: None)
  Receive Date: 20040901
  Receipt Date: 20040817
  Transmission Date: 20050211
  Serious: Yes (Death)
  Sender: FDA-Public Use
  Company Number: 04P-163-0270983-00

PATIENT
  Sex: Male

DRUGS (10)
  1. KALETRA [Suspect]
     Indication: HIV INFECTION
     Dates: end: 20030901
  2. NORVIR [Concomitant]
     Indication: HIV INFECTION
     Dates: end: 20030901
  3. OXANDROLONE [Suspect]
     Indication: HIV INFECTION
     Dosage: 10 MG, 1 IN 1 D, PER ORAL
     Route: 048
     Dates: start: 20010101, end: 20030101
  4. AMPRENAVIR [Suspect]
     Indication: HIV INFECTION
  5. SAQUINAVIR [Suspect]
     Indication: HIV INFECTION
  6. NELFINAVIR BESILATE [Suspect]
     Indication: HIV INFECTION
  7. MIONOXIDIL [Concomitant]
  8. BETA BLOCKING AGENTS [Concomitant]
  9. ANTIHYPERTENSIVES [Concomitant]
  10. CANNABIS [Concomitant]

REACTIONS (6)
  - BRAIN NATRIURETIC PEPTIDE INCREASED [None]
  - CORONARY ARTERY RESTENOSIS [None]
  - CORONARY ARTERY STENOSIS [None]
  - DYSPNOEA [None]
  - HYPERLIPIDAEMIA [None]
  - MYOCARDIAL INFARCTION [None]
